FAERS Safety Report 16074142 (Version 1)
Quarter: 2019Q1

REPORT INFORMATION
  Report Type: Spontaneous
  Country: US (occurrence: US)
  Receive Date: 20190314
  Receipt Date: 20190314
  Transmission Date: 20190418
  Serious: No
  Sender: FDA-Public Use
  Company Number: US-MYLANLABS-2019M1018012

PATIENT

DRUGS (1)
  1. DIAZEPAM. [Suspect]
     Active Substance: DIAZEPAM
     Indication: PAIN MANAGEMENT
     Dosage: UNK
     Route: 065

REACTIONS (2)
  - Product use in unapproved indication [Recovered/Resolved]
  - No adverse event [Unknown]
